FAERS Safety Report 4851598-0 (Version None)
Quarter: 2005Q4

REPORT INFORMATION
  Report Type: 
  Country: None (occurrence: None)
  Receive Date: 20051212
  Receipt Date: 20051201
  Transmission Date: 20060501
  Serious: Yes (Other)
  Sender: FDA-Public Use
  Company Number: PHRM2005FR03160

PATIENT
  Age: 78 Year
  Sex: Female

DRUGS (4)
  1. ZOMETA [Suspect]
     Indication: MULTIPLE MYELOMA
     Route: 042
     Dates: start: 20041001
  2. ALKERAN [Concomitant]
     Indication: MULTIPLE MYELOMA
     Dates: start: 20041001
  3. SOLU-MEDROL [Concomitant]
     Indication: MULTIPLE MYELOMA
     Dates: start: 20041001
  4. EPREX [Concomitant]
     Indication: MULTIPLE MYELOMA
     Dates: start: 20041001

REACTIONS (4)
  - OSTEONECROSIS [None]
  - SCIATICA [None]
  - TOOTH DISORDER [None]
  - TOOTH EXTRACTION [None]
